FAERS Safety Report 5245499-6 (Version None)
Quarter: 2007Q1

REPORT INFORMATION
  Report Type: 
  Country: None (occurrence: None)
  Receive Date: 20070223
  Receipt Date: 20070215
  Transmission Date: 20070707
  Serious: Yes (Hospitalization, Other)
  Sender: FDA-Public Use
  Company Number: PHNU2006DE03490

PATIENT
  Age: 70 Year
  Sex: Female
  Weight: 43 kg

DRUGS (2)
  1. UNACID [Suspect]
     Indication: OSTEONECROSIS
     Dosage: 1.5 G, TID
     Route: 042
     Dates: end: 20061126
  2. ZOMETA [Suspect]
     Indication: METASTASES TO BONE
     Dosage: 4 MG, QMO
     Route: 042
     Dates: start: 20031211, end: 20061210

REACTIONS (7)
  - DENTAL OPERATION [None]
  - DRUG ERUPTION [None]
  - OSTEONECROSIS [None]
  - OSTEOTOMY [None]
  - PAIN IN JAW [None]
  - PROCEDURAL PAIN [None]
  - TOOTH EXTRACTION [None]
